FAERS Safety Report 8991881 (Version 8)
Quarter: 2015Q1

REPORT INFORMATION
  Report Type: Report from Study
  Country: CA (occurrence: CA)
  Receive Date: 20121231
  Receipt Date: 20150126
  Transmission Date: 20150721
  Serious: Yes (Hospitalization, Other)
  Sender: FDA-Public Use
  Company Number: CA-ROCHE-1172458

PATIENT
  Age: 66 Year
  Sex: Female
  Weight: 60 kg

DRUGS (9)
  1. OMALIZUMAB [Suspect]
     Active Substance: OMALIZUMAB
     Indication: ASTHMA
     Route: 058
     Dates: start: 20060405
  2. OMALIZUMAB [Suspect]
     Active Substance: OMALIZUMAB
     Route: 058
     Dates: start: 20070207
  3. OMALIZUMAB [Suspect]
     Active Substance: OMALIZUMAB
     Route: 058
  4. OMALIZUMAB [Suspect]
     Active Substance: OMALIZUMAB
     Route: 058
  5. OMALIZUMAB [Suspect]
     Active Substance: OMALIZUMAB
     Route: 058
  6. OMALIZUMAB [Suspect]
     Active Substance: OMALIZUMAB
     Route: 058
     Dates: start: 20140717
  7. OMALIZUMAB [Suspect]
     Active Substance: OMALIZUMAB
     Route: 058
     Dates: start: 20131218
  8. OMALIZUMAB [Suspect]
     Active Substance: OMALIZUMAB
     Route: 058
     Dates: start: 20140619
  9. OMALIZUMAB [Suspect]
     Active Substance: OMALIZUMAB
     Route: 058
     Dates: start: 20150115

REACTIONS (34)
  - Bronchitis [Recovered/Resolved]
  - Diabetes mellitus [Unknown]
  - Lung disorder [Unknown]
  - Stress [Unknown]
  - Gingival ulceration [Unknown]
  - Oedema peripheral [Unknown]
  - Aphonia [Unknown]
  - Sputum discoloured [Recovering/Resolving]
  - Pain in extremity [Unknown]
  - Arthralgia [Unknown]
  - Pruritus [Unknown]
  - Blood cholesterol increased [Unknown]
  - Pedal pulse abnormal [Unknown]
  - Joint swelling [Unknown]
  - Hypersensitivity [Unknown]
  - Fatigue [Unknown]
  - Gastroenteritis viral [Unknown]
  - Productive cough [Recovering/Resolving]
  - Oropharyngeal pain [Unknown]
  - Dysphonia [Unknown]
  - Blood pressure diastolic decreased [Not Recovered/Not Resolved]
  - Upper respiratory tract infection [Unknown]
  - Weight decreased [Unknown]
  - Asthma [Recovering/Resolving]
  - Pain [Recovering/Resolving]
  - Lacrimation increased [Unknown]
  - Nail disorder [Unknown]
  - Blood pressure systolic increased [Recovered/Resolved]
  - Gastroenteritis [Unknown]
  - Heart rate increased [Unknown]
  - Lung infection [Unknown]
  - Depressed mood [Unknown]
  - Sciatica [Unknown]
  - Erythema [Unknown]

NARRATIVE: CASE EVENT DATE: 20130818
